FAERS Safety Report 23491169 (Version 1)
Quarter: 2024Q1

REPORT INFORMATION
  Report Type: Spontaneous
  Country: US (occurrence: None)
  Receive Date: 20240207
  Receipt Date: 20240207
  Transmission Date: 20240410
  Serious: No
  Sender: FDA-Public Use
  Company Number: US-ROCHE-3444627

PATIENT
  Age: 11 Year
  Sex: Male

DRUGS (4)
  1. NUTROPIN AQ [Suspect]
     Active Substance: SOMATROPIN
     Indication: Hypopituitarism
     Dosage: DAILY EVERY OTHER DAY (ALTERNATES WITH 1.3 MG DOSE EVERY OTHER DAY)
     Route: 058
     Dates: start: 202209
  2. NUTROPIN AQ [Suspect]
     Active Substance: SOMATROPIN
  3. NUTROPIN AQ [Suspect]
     Active Substance: SOMATROPIN
     Indication: Growth hormone deficiency
     Dosage: EVERY OTHER DAY (ALTERNATES WITH 1.2 MG DOSE EVERY OTHER DAY)
     Route: 058
     Dates: start: 202209
  4. NUTROPIN AQ [Suspect]
     Active Substance: SOMATROPIN

REACTIONS (7)
  - Product complaint [Unknown]
  - Product dose omission issue [Unknown]
  - Product quality issue [Unknown]
  - Pain [Recovered/Resolved]
  - Mass [Recovered/Resolved]
  - Medication error [Unknown]
  - Wrong technique in product usage process [Unknown]

NARRATIVE: CASE EVENT DATE: 20230101
